FAERS Safety Report 14138425 (Version 1)
Quarter: 2017Q4

REPORT INFORMATION
  Report Type: Spontaneous
  Country: US (occurrence: US)
  Receive Date: 20171027
  Receipt Date: 20171027
  Transmission Date: 20180321
  Serious: No
  Sender: FDA-Public Use
  Company Number: US-ROCHE-1894528

PATIENT
  Age: 8 Year
  Sex: Female
  Weight: 27.24 kg

DRUGS (2)
  1. TAMIFLU [Suspect]
     Active Substance: OSELTAMIVIR PHOSPHATE
     Indication: INFLUENZA
     Dosage: FORM 5 DAYS
     Route: 048
     Dates: start: 20170213, end: 20170214
  2. ADVIL [Concomitant]
     Active Substance: IBUPROFEN
     Indication: PYREXIA
     Dosage: TAKING AS NEEDED FOR FEVER ;ONGOING: YES
     Route: 048

REACTIONS (3)
  - Vomiting [Recovering/Resolving]
  - Product quality issue [Unknown]
  - Product taste abnormal [Unknown]

NARRATIVE: CASE EVENT DATE: 20170214
